FAERS Safety Report 5806541-4 (Version None)
Quarter: 2008Q3

REPORT INFORMATION
  Report Type: 
  Country: None (occurrence: None)
  Receive Date: 20080710
  Receipt Date: 20080619
  Transmission Date: 20090109
  Serious: No
  Sender: FDA-Public Use
  Company Number: US-BOEHRINGER INGELHEIM GMBH, GERMANY-2008-BP-09560BP

PATIENT
  Sex: Female

DRUGS (6)
  1. SPIRIVA [Suspect]
     Indication: CHRONIC OBSTRUCTIVE PULMONARY DISEASE
     Route: 055
     Dates: start: 20080501
  2. SPIRIVA [Suspect]
     Indication: ASTHMA
  3. PULMICORT-100 [Concomitant]
  4. CARDIZEM [Concomitant]
  5. COZAAR [Concomitant]
  6. XOPENEX [Concomitant]

REACTIONS (5)
  - ALOPECIA [None]
  - BACK PAIN [None]
  - DIZZINESS [None]
  - HEADACHE [None]
  - OEDEMA PERIPHERAL [None]
